FAERS Safety Report 8885391 (Version 2)
Quarter: 2012Q4

REPORT INFORMATION
  Report Type: 
  Country: US (occurrence: US)
  Receive Date: 20121102
  Receipt Date: 20121115
  Transmission Date: 20130627
  Serious: Yes (Hospitalization, Other)
  Sender: FDA-Public Use
  Company Number: US-BAXTER-2012BAX017822

PATIENT
  Age: 45 Year
  Sex: Male

DRUGS (1)
  1. DIANEAL LOW CALCIUM [Suspect]
     Indication: PERITONEAL DIALYSIS
     Route: 033
     Dates: start: 20120905

REACTIONS (5)
  - Ultrafiltration failure [Not Recovered/Not Resolved]
  - Catheter site cellulitis [Recovered/Resolved]
  - Ultrafiltration failure [Unknown]
  - Peritoneal dialysis complication [Unknown]
  - Fluid retention [Unknown]
